FAERS Safety Report 8318042-2 (Version None)
Quarter: 2012Q2

REPORT INFORMATION
  Report Type: 
  Country: None (occurrence: None)
  Receive Date: 20120427
  Receipt Date: 20120416
  Transmission Date: 20120825
  Serious: Yes (Other)
  Sender: FDA-Public Use
  Company Number: FR-SANOFI-AVENTIS-2012SA026503

PATIENT
  Age: 11 Year
  Sex: Male

DRUGS (8)
  1. KETAMINE HCL [Suspect]
     Route: 042
     Dates: start: 20091121, end: 20091128
  2. SUFENTANIL CITRATE [Suspect]
     Route: 042
     Dates: start: 20091121, end: 20091128
  3. MIDAZOLAM [Suspect]
     Route: 042
     Dates: start: 20091121, end: 20091128
  4. CEFTRIAXONE [Suspect]
     Route: 042
     Dates: start: 20091124, end: 20091128
  5. ZANAMIVIR [Suspect]
     Route: 042
     Dates: start: 20091128, end: 20091128
  6. COROTROPE [Suspect]
     Route: 042
     Dates: start: 20091125, end: 20091128
  7. CEFOTAXIME [Suspect]
     Route: 042
     Dates: start: 20091121, end: 20091128
  8. OSELTAMIVIR [Suspect]
     Route: 048
     Dates: start: 20091121, end: 20091127

REACTIONS (2)
  - TRANSAMINASES INCREASED [None]
  - BLOOD CREATININE INCREASED [None]
